FAERS Safety Report 9589108 (Version 1)
Quarter: 2013Q4

REPORT INFORMATION
  Report Type: Spontaneous
  Country: US (occurrence: US)
  Receive Date: 20131003
  Receipt Date: 20131003
  Transmission Date: 20140711
  Serious: No
  Sender: FDA-Public Use
  Company Number: US-AMGEN-USASP2012068562

PATIENT
  Age: 61 Year
  Sex: Female

DRUGS (1)
  1. ENBREL [Suspect]
     Indication: RHEUMATOID ARTHRITIS
     Dosage: 50 MG, QWK
     Route: 058
     Dates: start: 200912

REACTIONS (6)
  - Constipation [Unknown]
  - Arthropod bite [Unknown]
  - Malaise [Unknown]
  - Borrelia test negative [Unknown]
  - Viral infection [Unknown]
  - Gastrointestinal bacterial infection [Unknown]
